FAERS Safety Report 6532075-8 (Version None)
Quarter: 2010Q1

REPORT INFORMATION
  Report Type: 
  Country: None (occurrence: None)
  Receive Date: 20100108
  Receipt Date: 20100103
  Transmission Date: 20100710
  Serious: Yes (Hospitalization)
  Sender: FDA-Public Use
  Company Number: US-JNJFOC-20100101655

PATIENT
  Sex: Male
  Weight: 6.3 kg

DRUGS (3)
  1. BLINDED; INFLIXIMAB, RECOMBINANT [Suspect]
     Indication: KAWASAKI'S DISEASE
     Route: 042
  2. PLACEBO [Suspect]
     Indication: KAWASAKI'S DISEASE
     Route: 042
  3. IMMUNOGLOBULINS [Concomitant]
     Indication: KAWASAKI'S DISEASE
     Route: 042

REACTIONS (1)
  - CORONARY ARTERY DILATATION [None]
